FAERS Safety Report 23320886 (Version 3)
Quarter: 2024Q1

REPORT INFORMATION
  Report Type: Spontaneous
  Country: CO (occurrence: CO)
  Receive Date: 20231220
  Receipt Date: 20240208
  Transmission Date: 20240410
  Serious: No
  Sender: FDA-Public Use
  Company Number: CO-PFIZER INC-PV202300197435

PATIENT
  Age: 14 Year
  Sex: Male

DRUGS (1)
  1. GENOTROPIN [Suspect]
     Active Substance: SOMATROPIN
     Indication: Growth hormone deficiency
     Dosage: 1.6 MG
     Dates: start: 201908

REACTIONS (3)
  - Poor quality device used [Unknown]
  - Device defective [Unknown]
  - Device information output issue [Unknown]

NARRATIVE: CASE EVENT DATE: 20231201
